FAERS Safety Report 21444764 (Version 1)
Quarter: 2022Q4

REPORT INFORMATION
  Report Type: Spontaneous
  Country: US (occurrence: None)
  Receive Date: 20221010
  Receipt Date: 20221010
  Transmission Date: 20230113
  Serious: Yes (Life-Threatening, Hospitalization)
  Sender: FDA-Public Use
  Company Number: None

PATIENT
  Age: 60 Year
  Sex: Male
  Weight: 56.25 kg

DRUGS (1)
  1. LISINOPRIL [Suspect]
     Active Substance: LISINOPRIL
     Dosage: 40 MG EVERY DAY PO?
     Route: 048
     Dates: start: 20191114, end: 20220513

REACTIONS (1)
  - Angioedema [None]

NARRATIVE: CASE EVENT DATE: 20220513
